FAERS Safety Report 26211794 (Version 1)
Quarter: 2025Q4

REPORT INFORMATION
  Report Type: Spontaneous
  Country: KR (occurrence: KR)
  Receive Date: 20251230
  Receipt Date: 20251230
  Transmission Date: 20260117
  Serious: Yes (Hospitalization)
  Sender: MERCK KGAA
  Company Number: KR-Merck Healthcare KGaA-2025066621

PATIENT
  Age: 67 Year
  Sex: Male

DRUGS (8)
  1. DIABEX [Suspect]
     Active Substance: METFORMIN HYDROCHLORIDE
     Indication: Type 2 diabetes mellitus
     Dosage: QD
     Dates: start: 20200706
  2. JARDIANCE [Suspect]
     Active Substance: EMPAGLIFLOZIN
     Indication: Type 2 diabetes mellitus
  3. BEPOTAON [Concomitant]
     Indication: Skin infection
  4. CETIZAL [CEFTIZOXIME SODIUM] [Concomitant]
     Indication: Skin infection
  5. METHYLPREDNISOLONE [Concomitant]
     Active Substance: METHYLPREDNISOLONE
     Indication: Skin infection
  6. LAFUTIDINE [Concomitant]
     Active Substance: LAFUTIDINE
     Indication: Skin infection
  7. EVOGLIPTIN TARTRATE [Concomitant]
     Active Substance: EVOGLIPTIN TARTRATE
     Indication: Type 2 diabetes mellitus
  8. URACIN [CROTAMITON] [Concomitant]
     Indication: Skin infection

REACTIONS (1)
  - Inguinal hernia [Recovered/Resolved]

NARRATIVE: CASE EVENT DATE: 20251001
